FAERS Safety Report 11550100 (Version 1)
Quarter: 2015Q3

REPORT INFORMATION
  Report Type: Spontaneous
  Country: CO (occurrence: CO)
  Receive Date: 20150924
  Receipt Date: 20150924
  Transmission Date: 20151125
  Serious: Yes (Other)
  Sender: FDA-Public Use
  Company Number: CO-BAUSCH-BL-2015-021958

PATIENT
  Age: 53 Year
  Sex: Female

DRUGS (2)
  1. GENTAMICIN. [Suspect]
     Active Substance: GENTAMICIN
     Indication: SUPERINFECTION
     Route: 030
  2. GENTAMICIN. [Suspect]
     Active Substance: GENTAMICIN
     Indication: BURNS THIRD DEGREE

REACTIONS (1)
  - Anaphylactic reaction [Unknown]
